FAERS Safety Report 20560085 (Version 11)
Quarter: 2023Q4

REPORT INFORMATION
  Report Type: Spontaneous
  Country: CA (occurrence: CA)
  Receive Date: 20220307
  Receipt Date: 20231114
  Transmission Date: 20240110
  Serious: Yes (Life-Threatening, Hospitalization, Other)
  Sender: FDA-Public Use
  Company Number: CA-PFIZER INC-2020349577

PATIENT
  Age: 45 Year
  Sex: Female
  Weight: 81.633 kg

DRUGS (11)
  1. IBRANCE [Suspect]
     Active Substance: PALBOCICLIB
     Indication: Breast cancer metastatic
     Dosage: UNK
     Route: 048
     Dates: start: 20200521, end: 2020
  2. IBRANCE [Suspect]
     Active Substance: PALBOCICLIB
     Dosage: 125 MG, CYCLIC (ONCE DIALY 21 DAYS ON 28 UNTIL PROGRESSION)
     Route: 048
     Dates: start: 2020
  3. IBRANCE [Suspect]
     Active Substance: PALBOCICLIB
     Dosage: 125 MG, CYCLIC (ONCE DIALY 21 DAYS ON 28 UNTIL PROGRESSION)
     Route: 048
     Dates: start: 20210706
  4. IBRANCE [Suspect]
     Active Substance: PALBOCICLIB
     Dosage: 100 MG, CYCLIC (1X DAY FOR 21 DAYS, 7 DAYS OFF)
     Route: 048
     Dates: start: 20211013
  5. FEMARA [Concomitant]
     Active Substance: LETROZOLE
     Dosage: UNK
  6. XGEVA [Concomitant]
     Active Substance: DENOSUMAB
     Dosage: UNK
  7. ZOLADEX [Concomitant]
     Active Substance: GOSERELIN ACETATE
     Dosage: UNK
  8. COVID-19 VACCINE [Concomitant]
     Indication: COVID-19 immunisation
     Dosage: DOSE 1, SINGLE
  9. COVID-19 VACCINE [Concomitant]
     Dosage: DOSE 2, SINGLE
  10. COVID-19 VACCINE [Concomitant]
     Dosage: DOSE 3, SINGLE
     Dates: start: 20211230, end: 20211230
  11. LETROZOLE [Concomitant]
     Active Substance: LETROZOLE
     Dosage: UNK

REACTIONS (22)
  - Cellulitis [Recovered/Resolved]
  - Bacteraemia [Recovered/Resolved]
  - Infection [Unknown]
  - Muscular weakness [Recovering/Resolving]
  - COVID-19 [Unknown]
  - Neutropenia [Unknown]
  - Immunosuppression [Unknown]
  - Hydronephrosis [Recovered/Resolved]
  - Lymphadenopathy [Unknown]
  - Pulmonary mass [Unknown]
  - Goitre [Unknown]
  - Proctitis [Unknown]
  - Urinary tract infection [Unknown]
  - Osteoarthritis [Recovering/Resolving]
  - Cystitis [Unknown]
  - Platelet count decreased [Unknown]
  - Anaemia [Unknown]
  - Blood creatine phosphokinase increased [Unknown]
  - Blood creatinine decreased [Unknown]
  - Nodule [Unknown]
  - Hepatic enzyme increased [Unknown]
  - Ear haemorrhage [Unknown]

NARRATIVE: CASE EVENT DATE: 20211001
